FAERS Safety Report 26208409 (Version 1)
Quarter: 2025Q4

REPORT INFORMATION
  Report Type: Spontaneous
  Country: US (occurrence: None)
  Receive Date: 20251227
  Receipt Date: 20251227
  Transmission Date: 20260118
  Serious: Yes (Other)
  Sender: FDA-CTU
  Company Number: None

PATIENT
  Age: 23 Year

DRUGS (1)
  1. BUPROPION XL [Suspect]
     Active Substance: BUPROPION HYDROCHLORIDE
     Indication: Depression
     Dosage: ORAL
     Route: 048

REACTIONS (9)
  - Accidental overdose [None]
  - Seizure [None]
  - Unresponsive to stimuli [None]
  - Gait disturbance [None]
  - Limb discomfort [None]
  - Fall [None]
  - Confusional state [None]
  - Memory impairment [None]
  - Brain fog [None]

NARRATIVE: CASE EVENT DATE: 20220512
